FAERS Safety Report 8942696 (Version 1)
Quarter: 2012Q4

REPORT INFORMATION
  Report Type: 
  Country: IT (occurrence: IT)
  Receive Date: 20121204
  Receipt Date: 20121204
  Transmission Date: 20130627
  Serious: Yes (Other)
  Sender: FDA-Public Use
  Company Number: IT-JNJFOC-20121112872

PATIENT
  Age: 14 Year
  Sex: Male

DRUGS (10)
  1. REMICADE [Suspect]
     Indication: COLITIS ULCERATIVE
     Route: 042
     Dates: start: 20121012
  2. REMICADE [Suspect]
     Indication: COLITIS ULCERATIVE
     Route: 042
     Dates: start: 20121112
  3. MESALAZINE [Concomitant]
     Indication: COLITIS ULCERATIVE
     Route: 048
     Dates: start: 20121109, end: 20121114
  4. METRONIDAZOLE [Concomitant]
     Indication: CLOSTRIDIAL INFECTION
     Route: 042
     Dates: start: 20121109, end: 20121114
  5. OMEPRAZOLE [Concomitant]
     Indication: NAUSEA
     Route: 048
     Dates: start: 20121112, end: 20121114
  6. CHLORPHENAMINE [Concomitant]
     Indication: NAUSEA
     Route: 042
     Dates: start: 20121112, end: 20121112
  7. ZOFRAN [Concomitant]
     Indication: NAUSEA
     Route: 042
  8. ASACOL [Concomitant]
     Indication: COLITIS ULCERATIVE
     Dosage: 4g/100ml
     Route: 054
  9. MULTIVITAMINS [Concomitant]
     Dosage: 1 tablet daily
     Route: 048
  10. PROBIOTICS [Concomitant]
     Dosage: 1 bag daily
     Route: 048

REACTIONS (2)
  - Anaphylactic reaction [Recovered/Resolved]
  - Infusion related reaction [Recovered/Resolved]
